FAERS Safety Report 4313627-2 (Version None)
Quarter: 2004Q1

REPORT INFORMATION
  Report Type: 
  Country: None (occurrence: None)
  Receive Date: 20040305
  Receipt Date: 20040224
  Transmission Date: 20041129
  Serious: Yes (Other)
  Sender: FDA-Public Use
  Company Number: US-JNJFOC-20040206006

PATIENT
  Age: 80 Year
  Sex: Male
  Weight: 90.7194 kg

DRUGS (6)
  1. REMICADE [Suspect]
     Indication: RHEUMATOID ARTHRITIS
     Dosage: INTRAVENOUS DRIP
     Route: 041
     Dates: start: 20010118, end: 20030401
  2. ZESTRIL [Concomitant]
  3. GLYBURIDE [Concomitant]
  4. INSULIN [Concomitant]
  5. LASIX [Concomitant]
  6. COREG [Concomitant]

REACTIONS (2)
  - CARDIAC ANEURYSM [None]
  - IMMUNE SYSTEM DISORDER [None]
